FAERS Safety Report 5145651-4 (Version None)
Quarter: 2006Q4

REPORT INFORMATION
  Report Type: 
  Country: None (occurrence: None)
  Receive Date: 20061102
  Receipt Date: 20061020
  Transmission Date: 20070319
  Serious: Yes (Death)
  Sender: FDA-Public Use
  Company Number: 231511

PATIENT
  Age: 50 Year
  Sex: Male
  Weight: 57 kg

DRUGS (3)
  1. RITUXAN [Suspect]
     Indication: NON-HODGKIN'S LYMPHOMA
     Dosage: 620 MG, INTRAVENOUS
     Route: 042
     Dates: start: 20061002
  2. POLARAMINE [Concomitant]
  3. ACETAMINOPHEN [Concomitant]

REACTIONS (23)
  - ALANINE AMINOTRANSFERASE INCREASED [None]
  - BLOOD ALKALINE PHOSPHATASE INCREASED [None]
  - BLOOD PRESSURE INCREASED [None]
  - BODY TEMPERATURE INCREASED [None]
  - CARDIAC ARREST [None]
  - CEREBRAL DISORDER [None]
  - CEREBRAL HAEMORRHAGE [None]
  - CEREBRAL INFARCTION [None]
  - CHEYNE-STOKES RESPIRATION [None]
  - COMA [None]
  - DEPRESSED LEVEL OF CONSCIOUSNESS [None]
  - FEELING ABNORMAL [None]
  - GLOSSOPTOSIS [None]
  - HEART RATE INCREASED [None]
  - HYPOVENTILATION [None]
  - MENINGEAL DISORDER [None]
  - NERVOUS SYSTEM DISORDER [None]
  - OXYGEN SATURATION DECREASED [None]
  - PLATELET COUNT DECREASED [None]
  - RESPIRATION ABNORMAL [None]
  - RESPIRATORY RATE DECREASED [None]
  - SOMNOLENCE [None]
  - URINARY INCONTINENCE [None]
